FAERS Safety Report 8173742-2 (Version None)
Quarter: 2012Q1

REPORT INFORMATION
  Report Type: 
  Country: None (occurrence: None)
  Receive Date: 20120229
  Receipt Date: 20120228
  Transmission Date: 20120608
  Serious: Yes (Life-Threatening)
  Sender: FDA-Public Use
  Company Number: FR-BAYER-2012-019331

PATIENT
  Age: 91 Year
  Sex: Female

DRUGS (2)
  1. CIPROFLOXACIN [Suspect]
     Dosage: 500 MG, BID
     Route: 048
     Dates: start: 20120101, end: 20120127
  2. PREVISCAN [Suspect]
     Indication: ARRHYTHMIA
     Dosage: 10 MG, QD
     Route: 048
     Dates: end: 20120127

REACTIONS (1)
  - CEREBRAL HAEMATOMA [None]
